FAERS Safety Report 16083199 (Version 1)
Quarter: 2019Q1

REPORT INFORMATION
  Report Type: Report from Study
  Country: US (occurrence: US)
  Receive Date: 20190318
  Receipt Date: 20190318
  Transmission Date: 20190418
  Serious: Yes (Other)
  Sender: FDA-Public Use
  Company Number: US-AUROBINDO-AUR-APL-2019-014420

PATIENT

DRUGS (1)
  1. BUPIVACAINE HYDROCHLORIDE. [Suspect]
     Active Substance: BUPIVACAINE HYDROCHLORIDE
     Indication: PROCEDURAL PAIN
     Dosage: UNK
     Route: 065

REACTIONS (3)
  - Oxygen saturation decreased [Recovered/Resolved]
  - Systemic toxicity [Unknown]
  - Hypopnoea [Recovered/Resolved]
